FAERS Safety Report 17755141 (Version 2)
Quarter: 2020Q2

REPORT INFORMATION
  Report Type: Spontaneous
  Country: FR (occurrence: FR)
  Receive Date: 20200507
  Receipt Date: 20200522
  Transmission Date: 20200714
  Serious: Yes (Death)
  Sender: FDA-Public Use
  Company Number: NVSC2020FR121066

PATIENT
  Age: 72 Year
  Sex: Male
  Weight: 51 kg

DRUGS (9)
  1. RED BLOOD CELLS [Concomitant]
     Active Substance: HUMAN RED BLOOD CELL
     Indication: ANAEMIA
     Dosage: UNK UNK, TID
     Route: 042
     Dates: start: 20200127, end: 20200131
  2. ARANESP [Concomitant]
     Active Substance: DARBEPOETIN ALFA
     Indication: ANAEMIA
     Dosage: UNK UNK, QW
     Route: 058
     Dates: start: 20200131
  3. CABAZITAXEL [Suspect]
     Active Substance: CABAZITAXEL
     Indication: PROSTATE CANCER METASTATIC
  4. LENOGRASTIM [Suspect]
     Active Substance: LENOGRASTIM
     Indication: PROSTATE CANCER METASTATIC
     Dosage: UNK
     Route: 065
  5. PREDNISONE. [Suspect]
     Active Substance: PREDNISONE
     Indication: PROSTATE CANCER METASTATIC
  6. CORTANCYL [Concomitant]
     Active Substance: PREDNISONE
     Indication: CHEMOTHERAPY
     Dosage: 60 MG, QD
     Route: 048
     Dates: start: 20200129
  7. CABAZITAXEL [Suspect]
     Active Substance: CABAZITAXEL
     Indication: HORMONE-REFRACTORY PROSTATE CANCER
     Dosage: 16 MG/M2, Q3W
     Route: 042
     Dates: start: 20200128
  8. GRANULOCYT-CSF [Concomitant]
     Active Substance: GRANULOCYTE COLONY-STIMULATING FACTOR NOS
     Indication: CHEMOTHERAPY
     Dosage: UNK
     Route: 065
     Dates: start: 20200129
  9. PREDNISONE. [Suspect]
     Active Substance: PREDNISONE
     Indication: HORMONE-REFRACTORY PROSTATE CANCER
     Dosage: 10 MG, QD
     Route: 048
     Dates: start: 20200128

REACTIONS (1)
  - Respiratory distress [Fatal]

NARRATIVE: CASE EVENT DATE: 20200203
